FAERS Safety Report 16716178 (Version 2)
Quarter: 2019Q3

REPORT INFORMATION
  Report Type: Spontaneous
  Country: US (occurrence: US)
  Receive Date: 20190819
  Receipt Date: 20190930
  Transmission Date: 20191005
  Serious: No
  Sender: FDA-Public Use
  Company Number: US-AMGEN-USASP2019130386

PATIENT
  Age: 67 Year
  Sex: Female
  Weight: 109.5 kg

DRUGS (3)
  1. CARBOPLATIN. [Concomitant]
     Active Substance: CARBOPLATIN
     Indication: OVARIAN CANCER
     Dosage: UNK
  2. NEULASTA [Suspect]
     Active Substance: PEGFILGRASTIM
     Indication: NEUTROPENIA
     Dosage: UNK
     Route: 065
  3. PACLITAXEL. [Concomitant]
     Active Substance: PACLITAXEL
     Indication: OVARIAN CANCER
     Dosage: UNK

REACTIONS (3)
  - Accidental exposure to product [Unknown]
  - Product dose omission [Unknown]
  - Device defective [Unknown]

NARRATIVE: CASE EVENT DATE: 201907
